FAERS Safety Report 8574009-0 (Version None)
Quarter: 2012Q3

REPORT INFORMATION
  Report Type: 
  Country: None (occurrence: None)
  Receive Date: 20120806
  Receipt Date: 20120727
  Transmission Date: 20120928
  Serious: Yes (Other)
  Sender: FDA-Public Use
  Company Number: JP-VERTEX PHARMACEUTICALS INC.-AE-2012-011245

PATIENT
  Age: 63 Year
  Sex: Female

DRUGS (11)
  1. TELAVIC (TELAPREVIR) [Suspect]
     Route: 048
     Dates: start: 20120717
  2. ATELEC [Concomitant]
     Route: 048
  3. MAGLAX [Concomitant]
     Route: 048
  4. RIBAVIRIN [Concomitant]
     Route: 048
     Dates: start: 20120702
  5. TELAVIC (TELAPREVIR) [Suspect]
     Indication: HEPATITIS C
     Route: 048
     Dates: start: 20120605, end: 20120716
  6. LIVALO [Concomitant]
     Route: 048
  7. RIBAVIRIN [Concomitant]
     Indication: HEPATITIS C
     Dates: start: 20120605, end: 20120701
  8. PEGINTERFERON ALFA-2B [Concomitant]
     Route: 058
     Dates: start: 20120605
  9. EPADEL S [Concomitant]
     Route: 048
  10. FEROTYM [Concomitant]
     Route: 048
  11. CANDESARTAN CILEXETIL [Concomitant]
     Route: 048

REACTIONS (2)
  - ANAEMIA [None]
  - RASH [None]
